FAERS Safety Report 5159466-4 (Version None)
Quarter: 2006Q4

REPORT INFORMATION
  Report Type: 
  Country: None (occurrence: None)
  Receive Date: 20061122
  Receipt Date: 20061122
  Transmission Date: 20070319
  Serious: Yes (Life-Threatening, Hospitalization)
  Sender: FDA-Public Use
  Company Number: None

PATIENT
  Sex: Female

DRUGS (2)
  1. HEPARIN SODIUM 25,000 UNITS AND DEXTROSE 5% [Suspect]
     Indication: CATHETERISATION CARDIAC
     Dates: start: 20061026, end: 20061027
  2. HEPARIN SODIUM 25,000 UNITS AND DEXTROSE 5% [Suspect]
     Indication: POSTOPERATIVE CARE
     Dates: start: 20061026, end: 20061027

REACTIONS (1)
  - PLATELET COUNT DECREASED [None]
